FAERS Safety Report 11171844 (Version 1)
Quarter: 2015Q2

REPORT INFORMATION
  Report Type: Spontaneous
  Country: AU (occurrence: AU)
  Receive Date: 20150608
  Receipt Date: 20150608
  Transmission Date: 20150821
  Serious: Yes (Other)
  Sender: FDA-Public Use
  Company Number: AU-PFIZER INC-2014313180

PATIENT
  Age: 40 Year
  Sex: Male

DRUGS (1)
  1. PRISTIQ EXTENDED RELEASE [Suspect]
     Active Substance: DESVENLAFAXINE SUCCINATE
     Dosage: 100 MG, UNK

REACTIONS (11)
  - Impaired driving ability [Unknown]
  - Feeling abnormal [Unknown]
  - Depressed mood [Unknown]
  - Loss of consciousness [Unknown]
  - Impaired work ability [Unknown]
  - Drug withdrawal syndrome [Not Recovered/Not Resolved]
  - Mental status changes [Unknown]
  - Intentional product misuse [Unknown]
  - Aggression [Unknown]
  - Hostility [Unknown]
  - Anger [Unknown]
